FAERS Safety Report 8782805 (Version 2)
Quarter: 2012Q4

REPORT INFORMATION
  Report Type: 
  Country: US (occurrence: US)
  Receive Date: 20120913
  Receipt Date: 20121022
  Transmission Date: 20130627
  Serious: Yes (Death)
  Sender: FDA-Public Use
  Company Number: US-GLAXOSMITHKLINE-A0992976A

PATIENT
  Age: 46 Year
  Sex: Female

DRUGS (3)
  1. VOTRIENT [Suspect]
     Indication: PRODUCT USED FOR UNKNOWN INDICATION
     Dosage: 200MG Per day
     Route: 048
     Dates: start: 20120516
  2. TYKERB [Suspect]
     Indication: PRODUCT USED FOR UNKNOWN INDICATION
     Dosage: 1000MG Per day
     Route: 048
     Dates: start: 20120516
  3. NEUPOGEN [Concomitant]

REACTIONS (1)
  - Malignant neoplasm progression [Fatal]
